FAERS Safety Report 10934217 (Version 1)
Quarter: 2015Q1

REPORT INFORMATION
  Report Type: Spontaneous
  Country: DE (occurrence: DE)
  Receive Date: 20150320
  Receipt Date: 20150320
  Transmission Date: 20150721
  Serious: Yes (Other)
  Sender: FDA-Public Use
  Company Number: DE-ROCHE-1540385

PATIENT
  Age: 59 Year
  Sex: Female
  Weight: 93 kg

DRUGS (5)
  1. AVASTIN [Suspect]
     Active Substance: BEVACIZUMAB
     Indication: BREAST CANCER METASTATIC
     Route: 042
     Dates: start: 20120530, end: 20121114
  2. CODEIN [Concomitant]
     Active Substance: CODEINE
     Indication: COUGH
     Route: 048
     Dates: start: 20130910
  3. TAVEGIL [Concomitant]
     Active Substance: CLEMASTINE FUMARATE
     Indication: HYPERSENSITIVITY
     Route: 048
     Dates: start: 20120530
  4. AVASTIN [Suspect]
     Active Substance: BEVACIZUMAB
     Dosage: MAINTENANCE THERAPY?ON  23/SEP/2014 AND 14/OCT/2014 (DOSE WAS RECEIVED FROM LOT. NO. B7200B01).?ON 0
     Route: 042
     Dates: start: 20121120, end: 20150310
  5. RAMIPRIL. [Concomitant]
     Active Substance: RAMIPRIL
     Indication: HYPERTENSION
     Route: 048
     Dates: start: 20120606

REACTIONS (1)
  - Cough [Not Recovered/Not Resolved]

NARRATIVE: CASE EVENT DATE: 201411
